FAERS Safety Report 4486651-7 (Version None)
Quarter: 2004Q4

REPORT INFORMATION
  Report Type: 
  Country: None (occurrence: None)
  Receive Date: 20041027
  Receipt Date: 20041020
  Transmission Date: 20050328
  Serious: Yes (Other)
  Sender: FDA-Public Use
  Company Number: 200420579GDDC

PATIENT
  Age: 32 Year
  Sex: Male

DRUGS (1)
  1. HYDROCORTISONE [Suspect]
     Indication: SEBORRHOEIC DERMATITIS
     Dosage: DOSE: 1%
     Route: 061

REACTIONS (4)
  - CHORIORETINOPATHY [None]
  - CONDITION AGGRAVATED [None]
  - METAMORPHOPSIA [None]
  - RETINAL DETACHMENT [None]
